FAERS Safety Report 4283246-5 (Version None)
Quarter: 2004Q1

REPORT INFORMATION
  Report Type: 
  Country: None (occurrence: None)
  Receive Date: 20040129
  Receipt Date: 20040112
  Transmission Date: 20041129
  Serious: Yes (Death)
  Sender: FDA-Public Use
  Company Number: 2004IC000014

PATIENT
  Age: 0 Year
  Sex: Male

DRUGS (4)
  1. MESTINON [Suspect]
     Dosage: TRANSPLACENTAL
     Route: 064
     Dates: end: 20030902
  2. AZATHIOPRINE [Suspect]
     Dosage: TRANSPLACENTAL
     Route: 064
     Dates: end: 20030902
  3. MYTELASE [Suspect]
     Dosage: TRANSPLACENTAL
     Route: 064
     Dates: end: 20030902
  4. INSULIN [Suspect]
     Dosage: TRANSPLACENTAL
     Route: 064
     Dates: end: 20030902

REACTIONS (15)
  - ABORTION INDUCED [None]
  - CALCINOSIS [None]
  - CONGENITAL ANOMALY OF ADRENAL GLAND [None]
  - DRUG EXPOSURE DURING PREGNANCY [None]
  - GENITALIA EXTERNAL AMBIGUOUS [None]
  - HYPOSPADIAS [None]
  - KIDNEY MALFORMATION [None]
  - MULTIPLE CONGENITAL ABNORMALITIES [None]
  - OLIGOHYDRAMNIOS [None]
  - PULMONARY HYPOPLASIA [None]
  - RETROGNATHIA [None]
  - SKULL MALFORMATION [None]
  - SYNDACTYLY [None]
  - TALIPES [None]
  - VIRAL INFECTION [None]
